FAERS Safety Report 11615125 (Version 1)
Quarter: 2015Q4

REPORT INFORMATION
  Report Type: Report from Study
  Country: US (occurrence: US)
  Receive Date: 20151009
  Receipt Date: 20151009
  Transmission Date: 20160304
  Serious: Yes (Other)
  Sender: FDA-Public Use
  Company Number: US-ROCHE-1643988

PATIENT
  Age: 37 Year
  Sex: Female
  Weight: 88.53 kg

DRUGS (2)
  1. XOLAIR [Suspect]
     Active Substance: OMALIZUMAB
     Indication: CHRONIC SPONTANEOUS URTICARIA
     Route: 058
     Dates: start: 20150507
  2. ZYRTEC [Concomitant]
     Active Substance: CETIRIZINE HYDROCHLORIDE
     Dosage: ^BEEN TAKING THIS FOREVER^
     Route: 048

REACTIONS (3)
  - Fungal infection [Unknown]
  - Bacterial vaginosis [Unknown]
  - Candida infection [Unknown]

NARRATIVE: CASE EVENT DATE: 20150617
